FAERS Safety Report 23999171 (Version 2)
Quarter: 2024Q3

REPORT INFORMATION
  Report Type: Spontaneous
  Country: FR (occurrence: FR)
  Receive Date: 20240621
  Receipt Date: 20240704
  Transmission Date: 20241016
  Serious: Yes (Other)
  Sender: ABBVIE
  Company Number: FR-ABBVIE-5807057

PATIENT
  Age: 86 Year
  Sex: Male

DRUGS (2)
  1. OZURDEX [Suspect]
     Active Substance: DEXAMETHASONE
     Indication: Macular oedema
     Dosage: TIME INTERVAL: AS NECESSARY
     Route: 047
  2. TROPICAMIDE [Concomitant]
     Active Substance: TROPICAMIDE
     Indication: Chorioretinitis

REACTIONS (2)
  - Visual acuity reduced [Recovered/Resolved]
  - Chorioretinitis [Recovered/Resolved]
